FAERS Safety Report 7954275-2 (Version None)
Quarter: 2011Q4

REPORT INFORMATION
  Report Type: 
  Country: None (occurrence: None)
  Receive Date: 20111202
  Receipt Date: 20111129
  Transmission Date: 20120403
  Serious: Yes (Hospitalization)
  Sender: FDA-Public Use
  Company Number: FR-EISAI INC-E2090-01881-SPO-FR

PATIENT
  Sex: Female
  Weight: 1.96 kg

DRUGS (3)
  1. URBANYL [Suspect]
     Dosage: 20 MG DAILY
     Route: 064
     Dates: start: 20090121, end: 20090925
  2. LAMICTAL [Suspect]
     Dosage: 300 MG DAILY
     Route: 064
     Dates: start: 20090121, end: 20090925
  3. ZONEGRAN [Suspect]
     Dosage: 200 MG DAILY
     Route: 064
     Dates: start: 20090121, end: 20090925

REACTIONS (4)
  - FOETAL GROWTH RESTRICTION [None]
  - MATERNAL DRUGS AFFECTING FOETUS [None]
  - GASTROOESOPHAGEAL REFLUX DISEASE [None]
  - CAESAREAN SECTION [None]
